FAERS Safety Report 7551445-2 (Version None)
Quarter: 2011Q2

REPORT INFORMATION
  Report Type: 
  Country: None (occurrence: None)
  Receive Date: 20110616
  Receipt Date: 20110602
  Transmission Date: 20111010
  Serious: Yes (Other)
  Sender: FDA-Public Use
  Company Number: PHHY2011MX50244

PATIENT
  Sex: Female

DRUGS (1)
  1. EXFORGE [Suspect]
     Dosage: 1 DF, 160 MG VALS AND 5 MG AMLO

REACTIONS (2)
  - BLADDER CANCER [None]
  - NEOPLASM MALIGNANT [None]
